FAERS Safety Report 15646963 (Version 3)
Quarter: 2019Q2

REPORT INFORMATION
  Report Type: Spontaneous
  Country: JP (occurrence: JP)
  Receive Date: 20181122
  Receipt Date: 20190527
  Transmission Date: 20190711
  Serious: Yes (Life-Threatening, Hospitalization, Other)
  Sender: FDA-Public Use
  Company Number: JP-PFIZER INC-2018378156

PATIENT
  Age: 78 Year
  Sex: Male

DRUGS (7)
  1. LYRICA [Suspect]
     Active Substance: PREGABALIN
     Indication: PAIN
     Dosage: 150 TO 300 MG, DAILY
     Route: 048
     Dates: start: 2013, end: 20180716
  2. LYRICA [Suspect]
     Active Substance: PREGABALIN
     Dosage: 75 MG, 2X/DAY
     Route: 048
     Dates: start: 20180926
  3. LOXONIN [Concomitant]
     Active Substance: LOXOPROFEN SODIUM
     Indication: PAIN
     Dosage: 100 MG, 1X/DAY
     Dates: start: 2013
  4. BRONUCK [Concomitant]
     Active Substance: BROMFENAC SODIUM
     Dosage: 1 DF, 2X/DAY (1 DROP TWO TIMES A DAY)
     Route: 047
  5. RECOMODULIN [Suspect]
     Active Substance: THROMBOMODULIN ALFA
     Indication: URINARY TRACT INFECTION
     Dosage: UNK
  6. CEFTRIAXONE SODIUM. [Suspect]
     Active Substance: CEFTRIAXONE SODIUM
     Indication: URINARY TRACT INFECTION
     Dosage: UNK
     Dates: end: 20181002
  7. LYRICA [Suspect]
     Active Substance: PREGABALIN
     Dosage: 75 MG, 2X/DAY
     Route: 048
     Dates: start: 20180706, end: 20180918

REACTIONS (5)
  - Rhabdomyolysis [Recovered/Resolved]
  - Bacterial sepsis [Recovered/Resolved]
  - Pyelonephritis acute [Unknown]
  - Liver abscess [Recovered/Resolved]
  - Pneumonia [Unknown]

NARRATIVE: CASE EVENT DATE: 20180918
